FAERS Safety Report 22063541 (Version 2)
Quarter: 2023Q2

REPORT INFORMATION
  Report Type: Spontaneous
  Country: US (occurrence: US)
  Receive Date: 20230306
  Receipt Date: 20230606
  Transmission Date: 20230721
  Serious: No
  Sender: FDA-Public Use
  Company Number: US-AUROBINDO-AUR-APL-2023-007103

PATIENT
  Age: 75 Year
  Sex: Male
  Weight: 113.3 kg

DRUGS (4)
  1. DORZOLAMIDE HYDROCHLORIDE\TIMOLOL MALEATE [Suspect]
     Active Substance: DORZOLAMIDE HYDROCHLORIDE\TIMOLOL MALEATE
     Indication: Optic glioma
     Dosage: ONE DROP IN EACH EYE IN MORNING EVENING AND AFTERNOON
     Route: 047
     Dates: start: 1993
  2. DORZOLAMIDE HYDROCHLORIDE\TIMOLOL MALEATE [Suspect]
     Active Substance: DORZOLAMIDE HYDROCHLORIDE\TIMOLOL MALEATE
     Dosage: 1 DROP, ONCE A DAY
     Route: 065
     Dates: end: 202302
  3. BRIMONIDINE TARTRATE [Concomitant]
     Active Substance: BRIMONIDINE TARTRATE
     Indication: Glaucoma
     Dosage: UNK
     Route: 065
  4. LATANOPROST [Concomitant]
     Active Substance: LATANOPROST
     Indication: Glaucoma
     Dosage: UNK
     Route: 065

REACTIONS (3)
  - Headache [Recovered/Resolved]
  - Photophobia [Recovered/Resolved]
  - Vision blurred [Recovered/Resolved]
